APPROVED DRUG PRODUCT: CHIROCAINE
Active Ingredient: LEVOBUPIVACAINE HYDROCHLORIDE
Strength: EQ 5MG BASE/ML **Federal Register determination that product was not discontinued or withdrawn for safety or effectiveness reasons**
Dosage Form/Route: INJECTABLE;INJECTION
Application: N020997 | Product #002
Applicant: PURDUE PHARMA LP
Approved: Aug 5, 1999 | RLD: Yes | RS: No | Type: DISCN